FAERS Safety Report 6324988-7 (Version None)
Quarter: 2009Q3

REPORT INFORMATION
  Report Type: 
  Country: None (occurrence: None)
  Receive Date: 20090824
  Receipt Date: 20090616
  Transmission Date: 20100115
  Serious: No
  Sender: FDA-Public Use
  Company Number: US-ABBOTT-09P-163-0580325-00

PATIENT
  Sex: Female

DRUGS (16)
  1. NIASPAN [Suspect]
     Indication: DRUG USE FOR UNKNOWN INDICATION
     Dosage: ONCE DAILY AT BEDTIME
     Dates: start: 20090601
  2. MOBIC [Concomitant]
     Indication: DRUG USE FOR UNKNOWN INDICATION
  3. RESTASIS [Concomitant]
     Indication: DRUG USE FOR UNKNOWN INDICATION
  4. PREDNISONE TAB [Concomitant]
     Indication: DRUG USE FOR UNKNOWN INDICATION
  5. LEVOXYL [Concomitant]
     Indication: DRUG USE FOR UNKNOWN INDICATION
  6. INDERAL [Concomitant]
     Indication: DRUG USE FOR UNKNOWN INDICATION
  7. ESGIC-PLUS [Concomitant]
     Indication: DRUG USE FOR UNKNOWN INDICATION
  8. FROVA [Concomitant]
     Indication: DRUG USE FOR UNKNOWN INDICATION
  9. CRESTOR [Concomitant]
     Indication: DRUG USE FOR UNKNOWN INDICATION
  10. COLACE [Concomitant]
     Indication: DRUG USE FOR UNKNOWN INDICATION
  11. PROZAC [Concomitant]
     Indication: DRUG USE FOR UNKNOWN INDICATION
  12. TRAZODONE HCL [Concomitant]
     Indication: DRUG USE FOR UNKNOWN INDICATION
  13. ASPIRIN [Concomitant]
     Indication: DRUG USE FOR UNKNOWN INDICATION
  14. CALCIUM [Concomitant]
     Indication: DRUG USE FOR UNKNOWN INDICATION
  15. MAGNESIUM [Concomitant]
     Indication: DRUG USE FOR UNKNOWN INDICATION
  16. UNKNOWN MEDICATION [Concomitant]
     Indication: DRUG USE FOR UNKNOWN INDICATION

REACTIONS (1)
  - FLUSHING [None]
